FAERS Safety Report 16794682 (Version 1)
Quarter: 2019Q4

REPORT INFORMATION
  Report Type: Spontaneous
  Country: US (occurrence: US)
  Receive Date: 20190910
  Receipt Date: 20190910
  Transmission Date: 20200122
  Serious: Yes (Disabling, Other)
  Sender: FDA-Public Use
  Company Number: None

PATIENT
  Age: 55 Year
  Sex: Male
  Weight: 56.25 kg

DRUGS (2)
  1. METOPROLOL TARTRATE. [Concomitant]
     Active Substance: METOPROLOL TARTRATE
  2. COLGATE ENAMEL HEALTH MOUTHWASH [Suspect]
     Active Substance: SODIUM FLUORIDE
     Route: 048
     Dates: start: 20180824, end: 20180824

REACTIONS (22)
  - Abdominal pain upper [None]
  - Vomiting [None]
  - Weight decreased [None]
  - Coating in mouth [None]
  - Asthenia [None]
  - Dehydration [None]
  - Drug ineffective [None]
  - White blood cells urine positive [None]
  - Hypertension [None]
  - Tongue discolouration [None]
  - Vitamin D decreased [None]
  - Clostridium test positive [None]
  - Back pain [None]
  - Abnormal faeces [None]
  - Therapy cessation [None]
  - Application site pain [None]
  - Faeces discoloured [None]
  - Nausea [None]
  - Hypophagia [None]
  - Bacterial infection [None]
  - Infection [None]
  - Blood urine present [None]

NARRATIVE: CASE EVENT DATE: 20180824
